FAERS Safety Report 9778452 (Version 1)
Quarter: 2013Q4

REPORT INFORMATION
  Report Type: Spontaneous
  Country: US (occurrence: US)
  Receive Date: 20131223
  Receipt Date: 20131223
  Transmission Date: 20140711
  Serious: No
  Sender: FDA-Public Use
  Company Number: US-EISAI INC-AP356-00329-SPO-US

PATIENT
  Sex: Female

DRUGS (2)
  1. BELVIQ (LORCASERIN HYDROCHLORIDE) [Suspect]
     Indication: WEIGHT DECREASED
     Route: 048
     Dates: start: 201310, end: 201312
  2. PRISTIQ [Interacting]
     Indication: DEPRESSION
     Route: 048

REACTIONS (3)
  - Euphoric mood [Recovered/Resolved]
  - Dizziness [Recovered/Resolved]
  - Drug interaction [Recovered/Resolved]
